FAERS Safety Report 12278864 (Version 1)
Quarter: 2016Q2

REPORT INFORMATION
  Report Type: Spontaneous
  Country: JP (occurrence: JP)
  Receive Date: 20160418
  Receipt Date: 20160418
  Transmission Date: 20160815
  Serious: Yes (Other)
  Sender: FDA-Public Use
  Company Number: JP-AMGEN-JPNSP2016048764

PATIENT
  Age: 70 Year
  Sex: Female

DRUGS (3)
  1. PRALIA [Suspect]
     Active Substance: DENOSUMAB
     Indication: OSTEOPOROSIS
     Dosage: 60 MG, Q6MO
     Route: 058
     Dates: start: 20140131
  2. RIZE [Concomitant]
     Active Substance: CLOTIAZEPAM
     Dosage: 5 MG, QD
     Route: 048
  3. BROTIZOLAM [Concomitant]
     Active Substance: BROTIZOLAM
     Dosage: 0.5 MG, QD
     Route: 048

REACTIONS (2)
  - Melaena [Recovered/Resolved]
  - Abdominal pain [Recovered/Resolved]
